FAERS Safety Report 22109078 (Version 1)
Quarter: 2023Q1

REPORT INFORMATION
  Report Type: Report from Study
  Country: US (occurrence: None)
  Receive Date: 20230317
  Receipt Date: 20230317
  Transmission Date: 20230417
  Serious: Yes (Death)
  Sender: FDA-Public Use
  Company Number: US-ROCHE-3312662

PATIENT

DRUGS (2)
  1. ATEZOLIZUMAB [Suspect]
     Active Substance: ATEZOLIZUMAB
     Indication: Non-small cell lung cancer
     Route: 041
  2. TRETINOIN [Suspect]
     Active Substance: TRETINOIN
     Indication: Non-small cell lung cancer
     Dosage: ON DAYS 1-3 OF CYCLES 1-3
     Route: 048

REACTIONS (1)
  - Death [Fatal]
